FAERS Safety Report 8405216 (Version 11)
Quarter: 2014Q1

REPORT INFORMATION
  Report Type: Spontaneous
  Country: US (occurrence: US)
  Receive Date: 20120214
  Receipt Date: 20140228
  Transmission Date: 20141002
  Serious: Yes (Hospitalization, Disabling, Other)
  Sender: FDA-Public Use
  Company Number: US-PFIZER INC-2012037175

PATIENT
  Age: 58 Year
  Sex: Male
  Weight: 75 kg

DRUGS (9)
  1. LYRICA [Suspect]
     Indication: FIBROMYALGIA
     Dosage: 50 MG, 2X/DAY
     Route: 048
     Dates: start: 201201
  2. MORPHINE SULFATE [Suspect]
     Dosage: UNK
  3. NEURONTIN [Suspect]
     Dosage: UNK
  4. COMBIVENT [Concomitant]
     Dosage: UNK
  5. LOSARTAN [Concomitant]
     Indication: HYPERTENSION
     Dosage: UNK
  6. AMLODIPINE [Concomitant]
     Indication: HYPERTENSION
     Dosage: UNK
  7. TEMAZEPAM [Concomitant]
     Dosage: UNK
  8. OXYCODONE [Concomitant]
     Dosage: UNK
  9. SOMA [Concomitant]
     Dosage: UNK

REACTIONS (15)
  - Lower limb fracture [Unknown]
  - Wound infection staphylococcal [Unknown]
  - Skin disorder [Unknown]
  - Hypokinesia [Unknown]
  - Amnesia [Unknown]
  - Road traffic accident [Unknown]
  - Cyst [Unknown]
  - Arthritis [Unknown]
  - Chronic sinusitis [Unknown]
  - Rhinorrhoea [Unknown]
  - Drug hypersensitivity [Unknown]
  - Nasopharyngitis [Unknown]
  - Gastroenteritis viral [Unknown]
  - Therapeutic response unexpected [Unknown]
  - Malaise [Unknown]
